FAERS Safety Report 4963365-8 (Version None)
Quarter: 2006Q2

REPORT INFORMATION
  Report Type: 
  Country: None (occurrence: None)
  Receive Date: 20060404
  Receipt Date: 20060404
  Transmission Date: 20061013
  Serious: Yes (Hospitalization)
  Sender: FDA-Public Use
  Company Number: None

PATIENT
  Age: 63 Year
  Sex: Male

DRUGS (2)
  1. INSULIN ASPART [Suspect]
     Indication: DIABETES MELLITUS
     Dosage: 5 UNITS AC
  2. INSULIN GLARGINE [Suspect]
     Indication: DIABETES MELLITUS
     Dosage: 15 UNITS Q AM

REACTIONS (2)
  - HYPOGLYCAEMIA [None]
  - LOSS OF CONSCIOUSNESS [None]
